FAERS Safety Report 7580755-8 (Version None)
Quarter: 2011Q2

REPORT INFORMATION
  Report Type: 
  Country: None (occurrence: None)
  Receive Date: 20110629
  Receipt Date: 20110624
  Transmission Date: 20111010
  Serious: Yes (Life-Threatening, Hospitalization, Other)
  Sender: FDA-Public Use
  Company Number: JP-BRACCO-004842

PATIENT
  Sex: Male
  Weight: 73 kg

DRUGS (2)
  1. IOPAMIDOL [Suspect]
     Indication: AORTIC DISSECTION
     Dosage: 2.4ML/S
     Route: 042
     Dates: start: 20110512, end: 20110512
  2. IOPAMIDOL [Suspect]
     Indication: COMPUTERISED TOMOGRAM
     Dosage: 2.4ML/S
     Route: 042
     Dates: start: 20110512, end: 20110512

REACTIONS (2)
  - CONVULSION [None]
  - CONTRAST MEDIA ALLERGY [None]
